FAERS Safety Report 13270744 (Version 2)
Quarter: 2017Q1

REPORT INFORMATION
  Report Type: Spontaneous
  Country: US (occurrence: US)
  Receive Date: 20170225
  Receipt Date: 20170323
  Transmission Date: 20170428
  Serious: Yes (Hospitalization, Other)
  Sender: FDA-Public Use
  Company Number: US-BRISTOL-MYERS SQUIBB COMPANY-BMS-2017-015242

PATIENT
  Sex: Male

DRUGS (2)
  1. NIVOLUMAB [Suspect]
     Active Substance: NIVOLUMAB
     Indication: METASTATIC MALIGNANT MELANOMA
     Dosage: UNK, Q3WK
     Route: 065
  2. YERVOY [Suspect]
     Active Substance: IPILIMUMAB
     Indication: METASTATIC MALIGNANT MELANOMA
     Dosage: 1100 MG, Q3WK
     Route: 042
     Dates: start: 20161114, end: 20170117

REACTIONS (7)
  - Hypophysitis [Unknown]
  - Metastases to central nervous system [Unknown]
  - Encephalopathy [Unknown]
  - Exostosis [Unknown]
  - Adrenal insufficiency [Unknown]
  - Septic shock [Unknown]
  - Dysphagia [Unknown]
